FAERS Safety Report 9062658 (Version 1)
Quarter: 2013Q1

REPORT INFORMATION
  Report Type: Spontaneous
  Country: TR (occurrence: TR)
  Receive Date: 20130213
  Receipt Date: 20130213
  Transmission Date: 20140127
  Serious: Yes (Other)
  Sender: FDA-Public Use
  Company Number: TR-WATSON-2013-01803

PATIENT
  Age: 6 Year
  Sex: Male

DRUGS (1)
  1. VANCOMYCIN HCL (WATSON LABORATORIES) [Suspect]
     Indication: MENINGITIS BACTERIAL
     Dosage: 650 MG, QID
     Route: 065

REACTIONS (4)
  - Renal tubular necrosis [Recovered/Resolved]
  - Incorrect dose administered [Recovered/Resolved]
  - Medication error [Recovered/Resolved]
  - Overdose [Recovered/Resolved]
